FAERS Safety Report 5072657-6 (Version None)
Quarter: 2006Q3

REPORT INFORMATION
  Report Type: 
  Country: None (occurrence: None)
  Receive Date: 20060807
  Receipt Date: 20060731
  Transmission Date: 20061208
  Serious: Yes (Hospitalization)
  Sender: FDA-Public Use
  Company Number: SE-GLAXOSMITHKLINE-B0433185A

PATIENT
  Age: 75 Year
  Sex: Female

DRUGS (1)
  1. VALTREX [Suspect]
     Indication: SKIN DISORDER
     Dosage: 500MG PER DAY
     Dates: start: 20060420, end: 20060424

REACTIONS (5)
  - CONFUSIONAL STATE [None]
  - DISORIENTATION [None]
  - DYSARTHRIA [None]
  - HALLUCINATION [None]
  - SPEECH DISORDER [None]
